FAERS Safety Report 5335346-6 (Version None)
Quarter: 2007Q2

REPORT INFORMATION
  Report Type: 
  Country: None (occurrence: None)
  Receive Date: 20070322
  Receipt Date: 20051229
  Transmission Date: 20071010
  Serious: Yes (Hospitalization)
  Sender: FDA-Public Use
  Company Number: 06H-163-0304316-00

PATIENT
  Age: 76 Year
  Sex: Female
  Weight: 78.4723 kg

DRUGS (7)
  1. HEPARIN SODIUM [Suspect]
     Indication: ATRIAL FIBRILLATION
     Dosage: SEE IMAGE
     Route: 042
     Dates: start: 20051228, end: 20051228
  2. HEPARIN SODIUM [Suspect]
     Indication: ATRIAL FIBRILLATION
     Dosage: SEE IMAGE
     Route: 042
     Dates: start: 20051228, end: 20051229
  3. CARDIZEM [Concomitant]
  4. ACETYLSALICYLIC ACID SRT [Concomitant]
  5. TYLENOL [Concomitant]
  6. COUMADIN [Concomitant]
  7. HEPARIN SODIUM [Concomitant]

REACTIONS (1)
  - THERAPEUTIC RESPONSE DECREASED [None]
